FAERS Safety Report 18360510 (Version 2)
Quarter: 2020Q4

REPORT INFORMATION
  Report Type: Spontaneous
  Country: US (occurrence: US)
  Receive Date: 20201008
  Receipt Date: 20201028
  Transmission Date: 20210114
  Serious: No
  Sender: FDA-Public Use
  Company Number: US-PFIZER INC-2020385769

PATIENT
  Age: 46 Year
  Sex: Female
  Weight: 64.4 kg

DRUGS (1)
  1. IBRANCE [Suspect]
     Active Substance: PALBOCICLIB
     Indication: BREAST CANCER FEMALE
     Dosage: 125 MG, CYCLIC (DAILY 21 DAYS)
     Route: 048

REACTIONS (2)
  - White blood cell count decreased [Unknown]
  - Oropharyngeal pain [Unknown]
